FAERS Safety Report 8460100-6 (Version None)
Quarter: 2012Q2

REPORT INFORMATION
  Report Type: 
  Country: None (occurrence: None)
  Receive Date: 20120622
  Receipt Date: 20120618
  Transmission Date: 20120825
  Serious: Yes (Death, Other)
  Sender: FDA-Public Use
  Company Number: US-ELI_LILLY_AND_COMPANY-US201206006780

PATIENT
  Sex: Female

DRUGS (4)
  1. CARBOPLATIN [Concomitant]
     Indication: OVARIAN CANCER RECURRENT
     Dosage: AUC 4 MG/ML/MIN ON DAY 1
  2. GEMCITABINE HYDROCHLORIDE [Suspect]
     Indication: OVARIAN CANCER RECURRENT
     Dosage: 1000 MG/M2, DAYS 1 AND 8
  3. PEGYLATED LIPOSOMAL DOXORUBICIN HYDROCHLORIDE [Concomitant]
  4. BEVACIZUMAB [Concomitant]
     Dosage: 15 MG/KG, ON DAY 1 BEFORE GC

REACTIONS (2)
  - INTESTINAL PERFORATION [None]
  - NEOPLASM PROGRESSION [None]
